FAERS Safety Report 5757372-5 (Version None)
Quarter: 2008Q2

REPORT INFORMATION
  Report Type: 
  Country: None (occurrence: None)
  Receive Date: 20080603
  Receipt Date: 20080522
  Transmission Date: 20081010
  Serious: Yes (Life-Threatening)
  Sender: FDA-Public Use
  Company Number: JP-SANOFI-SYNTHELABO-A01200805744

PATIENT
  Sex: Female

DRUGS (6)
  1. CALONAL [Concomitant]
     Dates: start: 20080501
  2. FLUOROURACIL [Suspect]
     Indication: COLON CANCER RECURRENT
     Dosage: 500 MG
     Route: 042
     Dates: start: 20080501, end: 20080502
  3. AVASTIN [Suspect]
     Indication: COLON CANCER RECURRENT
     Dosage: 300 MG
     Route: 041
     Dates: start: 20080501, end: 20080501
  4. ELPLAT [Suspect]
     Indication: COLON CANCER RECURRENT
     Dosage: 100 MG
     Route: 041
     Dates: start: 20080501, end: 20080501
  5. ISOVORIN [Suspect]
     Indication: COLON CANCER RECURRENT
     Dosage: 250 MG
     Route: 041
     Dates: start: 20080501, end: 20080501
  6. RESTAMIN [Concomitant]
     Dates: start: 20080501

REACTIONS (2)
  - DUODENAL PERFORATION [None]
  - LEUKOPENIA [None]
